FAERS Safety Report 6369359-2 (Version None)
Quarter: 2009Q3

REPORT INFORMATION
  Report Type: 
  Country: None (occurrence: None)
  Receive Date: 20090917
  Receipt Date: 20090902
  Transmission Date: 20100115
  Serious: Yes (Other)
  Sender: FDA-Public Use
  Company Number: US-DEXPHARM-20091510

PATIENT
  Age: 72 Year
  Sex: Male
  Weight: 97.51 kg

DRUGS (2)
  1. OMEPRAZOLE [Suspect]
     Indication: BARRETT'S OESOPHAGUS
     Dosage: 20 MG ONCE A DAY, ORAL
     Route: 048
     Dates: start: 20080902, end: 20090901
  2. ASPIRIN [Suspect]
     Indication: PROPHYLAXIS
     Dates: start: 20070902, end: 20090819

REACTIONS (1)
  - GASTRIC ANTRAL VASCULAR ECTASIA [None]
